FAERS Safety Report 4834176-9 (Version None)
Quarter: 2005Q4

REPORT INFORMATION
  Report Type: 
  Country: None (occurrence: None)
  Receive Date: 20051118
  Receipt Date: 20051118
  Transmission Date: 20060501
  Serious: Yes (Other)
  Sender: FDA-Public Use
  Company Number: None

PATIENT
  Age: 44 Year
  Sex: Male
  Weight: 87.1 kg

DRUGS (10)
  1. TRAMADOL HCL [Suspect]
  2. GABAPENTIN [Concomitant]
  3. FLUNISOLIDE [Concomitant]
  4. NADOLOL [Concomitant]
  5. OMEPRAZOLE [Concomitant]
  6. PSEUDOEPHEDRINE HCL [Concomitant]
  7. SILDENAFIL CITRATE [Concomitant]
  8. IBUPROFEN [Concomitant]
  9. CITALOPRAM HYDROBROMIDE [Concomitant]
  10. DOCUSATE NA [Concomitant]

REACTIONS (1)
  - CONFUSIONAL STATE [None]
